FAERS Safety Report 9249712 (Version 2)
Quarter: 2014Q2

REPORT INFORMATION
  Report Type: Spontaneous
  Country: CL (occurrence: CL)
  Receive Date: 20130423
  Receipt Date: 20140410
  Transmission Date: 20141212
  Serious: Yes (Other)
  Sender: FDA-Public Use
  Company Number: CL-PFIZER INC-2013123472

PATIENT
  Age: 86 Year
  Sex: Female

DRUGS (2)
  1. XALATAN [Suspect]
     Indication: GLAUCOMA
     Dosage: 1 DROP ON EACH EYE DAILY
     Route: 047
     Dates: start: 2010
  2. GLAUCOTENSIL [Concomitant]

REACTIONS (1)
  - Cataract [Unknown]
